FAERS Safety Report 8231724-6 (Version None)
Quarter: 2012Q1

REPORT INFORMATION
  Report Type: 
  Country: None (occurrence: None)
  Receive Date: 20120323
  Receipt Date: 20120321
  Transmission Date: 20120608
  Serious: Yes (Death, Disabling, Other)
  Sender: FDA-Public Use
  Company Number: BR-BAYER-2011-112255

PATIENT
  Age: 42 Year
  Sex: Male

DRUGS (1)
  1. INTERFERON BETA-1B [Suspect]
     Indication: MULTIPLE SCLEROSIS
     Dosage: 8 MIU, QOD
     Route: 058
     Dates: start: 20050101

REACTIONS (4)
  - DEATH [None]
  - QUADRIPLEGIA [None]
  - CONVULSION [None]
  - LOSS OF CONSCIOUSNESS [None]
